FAERS Safety Report 6161891-X (Version None)
Quarter: 2009Q2

REPORT INFORMATION
  Report Type: 
  Country: None (occurrence: None)
  Receive Date: 20090421
  Receipt Date: 20090410
  Transmission Date: 20091009
  Serious: Yes (Hospitalization)
  Sender: FDA-Public Use
  Company Number: B0569504A

PATIENT
  Age: 79 Year
  Sex: Male

DRUGS (4)
  1. ALKERAN [Suspect]
     Dosage: 12MG PER DAY
     Route: 048
     Dates: start: 20071204, end: 20080519
  2. THALIDOMIDE [Suspect]
     Route: 048
     Dates: start: 20071210, end: 20080526
  3. DEXAMETHASONE 4MG TAB [Concomitant]
     Route: 065
     Dates: start: 20071202, end: 20080519
  4. PREVISCAN [Concomitant]
     Route: 065

REACTIONS (2)
  - PITTING OEDEMA [None]
  - THROMBOSIS [None]
